FAERS Safety Report 15309930 (Version 2)
Quarter: 2020Q3

REPORT INFORMATION
  Report Type: Spontaneous
  Country: NL (occurrence: NL)
  Receive Date: 20180823
  Receipt Date: 20200923
  Transmission Date: 20201102
  Serious: Yes (Other)
  Sender: FDA-Public Use
  Company Number: NL-AUROBINDO-AUR-APL-2018-043166

PATIENT
  Age: 44 Year
  Sex: Male
  Weight: 80 kg

DRUGS (2)
  1. QUETIAPINE FILM?COATED TABLETS 25MG [Suspect]
     Active Substance: QUETIAPINE
     Indication: SLEEP DISORDER
     Dosage: 1 DOSAGE FORM (ZN TOT 100 MG AN)
     Route: 065
     Dates: start: 20180618, end: 20180619
  2. QUETIAPINE FILM?COATED TABLETS 25MG [Suspect]
     Active Substance: QUETIAPINE
     Indication: ANXIETY

REACTIONS (1)
  - Panic attack [Unknown]

NARRATIVE: CASE EVENT DATE: 20180619
